FAERS Safety Report 18338155 (Version 1)
Quarter: 2020Q4

REPORT INFORMATION
  Report Type: Spontaneous
  Country: US (occurrence: US)
  Receive Date: 20201001
  Receipt Date: 20201001
  Transmission Date: 20210113
  Serious: No
  Sender: FDA-Public Use
  Company Number: None

PATIENT
  Sex: Female

DRUGS (22)
  1. GABAPENTIN. [Concomitant]
     Active Substance: GABAPENTIN
  2. POT CHLORIDE, PREVACID [Concomitant]
  3. HYDROCO, HYOSCYAMINE [Concomitant]
  4. IRBESARTAN. [Concomitant]
     Active Substance: IRBESARTAN
  5. SPIRONOLACT [Concomitant]
     Active Substance: SPIRONOLACTONE
  6. ATORVASTION [Concomitant]
  7. CYCLOBENZAPR [Concomitant]
     Active Substance: CYCLOBENZAPRINE
  8. FLUOXETINE [Concomitant]
     Active Substance: FLUOXETINE HYDROCHLORIDE
  9. DONEPEZIL. [Concomitant]
     Active Substance: DONEPEZIL
  10. ESTRADIOL. [Concomitant]
     Active Substance: ESTRADIOL
  11. VALSARATAN [Concomitant]
  12. TOPAMAX [Suspect]
     Active Substance: TOPIRAMATE
     Indication: RHEUMATOID ARTHRITIS
  13. ARIPPRAZOLE [Concomitant]
  14. CLONAZEPAM. [Concomitant]
     Active Substance: CLONAZEPAM
  15. MAGNESUIM [Concomitant]
  16. ACID CONTROL [Concomitant]
     Active Substance: FAMOTIDINE
  17. FOLIC ACID. [Concomitant]
     Active Substance: FOLIC ACID
  18. LANSOPRAZOLE. [Concomitant]
     Active Substance: LANSOPRAZOLE
  19. NETURIBTIN [Concomitant]
  20. PRIMIDONE, RIZATRIPTAN, SPIRIVA [Concomitant]
  21. TOPIRAMATE. [Concomitant]
     Active Substance: TOPIRAMATE
  22. VITAMIN D, VITAMIN D3 [Concomitant]

REACTIONS (1)
  - Headache [None]
